FAERS Safety Report 16577260 (Version 1)
Quarter: 2019Q3

REPORT INFORMATION
  Report Type: Spontaneous
  Country: US (occurrence: US)
  Receive Date: 20190716
  Receipt Date: 20190716
  Transmission Date: 20191004
  Serious: No
  Sender: FDA-Public Use
  Company Number: US-009507513-1906USA011327

PATIENT
  Age: 32 Year
  Sex: Male

DRUGS (6)
  1. LOTRISONE [Suspect]
     Active Substance: BETAMETHASONE DIPROPIONATE\CLOTRIMAZOLE
     Indication: PILONIDAL CYST
     Dosage: UNK, BID
     Route: 061
  2. METRONIDAZOLE. [Concomitant]
     Active Substance: METRONIDAZOLE
     Indication: HIDRADENITIS
  3. FLUCONAZOLE. [Concomitant]
     Active Substance: FLUCONAZOLE
     Indication: PILONIDAL CYST
     Dosage: 150 MILLIGRAM, DAILY
     Route: 048
  4. FLUCONAZOLE. [Concomitant]
     Active Substance: FLUCONAZOLE
     Indication: HIDRADENITIS
  5. METRONIDAZOLE. [Concomitant]
     Active Substance: METRONIDAZOLE
     Indication: PILONIDAL CYST
     Dosage: 250 MILLIGRAM, BID
     Route: 048
  6. LOTRISONE [Suspect]
     Active Substance: BETAMETHASONE DIPROPIONATE\CLOTRIMAZOLE
     Indication: HIDRADENITIS

REACTIONS (2)
  - Off label use [Unknown]
  - No adverse event [Unknown]
